FAERS Safety Report 6136606-1 (Version None)
Quarter: 2009Q1

REPORT INFORMATION
  Report Type: 
  Country: None (occurrence: None)
  Receive Date: 20090325
  Receipt Date: 20090311
  Transmission Date: 20090719
  Serious: Yes (Death)
  Sender: FDA-Public Use
  Company Number: JPI-P-006530

PATIENT

DRUGS (2)
  1. LUVOX [Suspect]
     Indication: DRUG USE FOR UNKNOWN INDICATION
     Dosage: ORAL
  2. ZIPRASIDONE HYDROCHLORIDE [Concomitant]

REACTIONS (1)
  - SEROTONIN SYNDROME [None]
